FAERS Safety Report 4676697-8 (Version None)
Quarter: 2005Q2

REPORT INFORMATION
  Report Type: 
  Country: None (occurrence: None)
  Receive Date: 20050527
  Receipt Date: 20050511
  Transmission Date: 20051028
  Serious: Yes (Life-Threatening)
  Sender: FDA-Public Use
  Company Number: 2005AP02781

PATIENT
  Age: 50 Year
  Sex: Male

DRUGS (3)
  1. XYLOCAINE POLYAMP [Suspect]
     Indication: INFILTRATION ANAESTHESIA
     Dates: start: 20050426, end: 20050426
  2. RINDERON [Concomitant]
     Dates: start: 20050426, end: 20050426
  3. CYANOCOBALAMIN [Concomitant]
     Route: 048

REACTIONS (2)
  - BLOOD PRESSURE DECREASED [None]
  - DEPRESSED LEVEL OF CONSCIOUSNESS [None]
